FAERS Safety Report 5332585-5 (Version None)
Quarter: 2007Q2

REPORT INFORMATION
  Report Type: 
  Country: None (occurrence: None)
  Receive Date: 20070523
  Receipt Date: 20070517
  Transmission Date: 20071010
  Serious: Yes (Hospitalization)
  Sender: FDA-Public Use
  Company Number: AU-BOEHRINGER INGELHEIM PHARMACEUTICALS, INC.-2007-BP-06704AU

PATIENT
  Age: 52 Year
  Sex: Female

DRUGS (2)
  1. MOBIC [Suspect]
  2. CELEBREX [Suspect]

REACTIONS (1)
  - CARDIOVASCULAR DISORDER [None]
